FAERS Safety Report 4697776-5 (Version None)
Quarter: 2005Q2

REPORT INFORMATION
  Report Type: 
  Country: None (occurrence: None)
  Receive Date: 20050621
  Receipt Date: 20050621
  Transmission Date: 20051028
  Serious: Yes (Hospitalization)
  Sender: FDA-Public Use
  Company Number: None

PATIENT
  Age: 81 Year
  Sex: Male
  Weight: 51.2 kg

DRUGS (1)
  1. VICODIN [Suspect]
     Indication: PAIN
     Dosage: 1 TAB PO Q 6 H PRNP
     Route: 048
     Dates: start: 20050126, end: 20050129

REACTIONS (4)
  - CONFUSIONAL STATE [None]
  - DELIRIUM [None]
  - DISORIENTATION [None]
  - INCOHERENT [None]
